FAERS Safety Report 23762120 (Version 1)
Quarter: 2024Q2

REPORT INFORMATION
  Report Type: Spontaneous
  Country: US (occurrence: US)
  Receive Date: 20240419
  Receipt Date: 20240419
  Transmission Date: 20240715
  Serious: Yes (Other)
  Sender: FDA-Public Use
  Company Number: US-AMGEN-USASP2024073748

PATIENT
  Age: 74 Year
  Sex: Female

DRUGS (8)
  1. PROLIA [Suspect]
     Active Substance: DENOSUMAB
     Indication: Osteoporosis
     Dosage: 60 MILLIGRAM, Q6MO
     Route: 065
  2. PROLIA [Suspect]
     Active Substance: DENOSUMAB
  3. EVENITY [Suspect]
     Active Substance: ROMOSOZUMAB-AQQG
     Indication: Osteoporosis
     Dosage: UNK UNK, QMO
     Route: 058
  4. PREMARIN [Concomitant]
     Active Substance: ESTROGENS, CONJUGATED
     Dosage: 5 PILLS A WEEK
  5. MILK OF MAGNESIA [Concomitant]
     Active Substance: MAGNESIUM HYDROXIDE
  6. CALCIUM [Concomitant]
     Active Substance: CALCIUM
     Dosage: 500 MILLIGRAM
  7. CALCIUM [Concomitant]
     Active Substance: CALCIUM
     Dosage: 220 MILLIGRAM
  8. VITAMIN D [Concomitant]
     Active Substance: VITAMIN D NOS
     Dosage: 25 MILLIGRAM

REACTIONS (8)
  - Spinal fracture [Unknown]
  - Compression fracture [Unknown]
  - Irritable bowel syndrome [Not Recovered/Not Resolved]
  - Alopecia [Unknown]
  - Paranasal sinus hypersecretion [Unknown]
  - Arthralgia [Unknown]
  - Blood cholesterol increased [Unknown]
  - Inappropriate schedule of product administration [Unknown]

NARRATIVE: CASE EVENT DATE: 20221201
